FAERS Safety Report 16722370 (Version 1)
Quarter: 2019Q3

REPORT INFORMATION
  Report Type: Spontaneous
  Country: US (occurrence: US)
  Receive Date: 20190820
  Receipt Date: 20190820
  Transmission Date: 20191005
  Serious: No
  Sender: FDA-Public Use
  Company Number: US-009507513-1908USA007402

PATIENT
  Age: 83 Year
  Sex: Male

DRUGS (3)
  1. TERAZOSIN [Concomitant]
     Active Substance: TERAZOSIN HYDROCHLORIDE
     Dosage: UNK
  2. BELSOMRA [Suspect]
     Active Substance: SUVOREXANT
     Dosage: 2 PILLS ONCE A NIGHT; ROUTE OF ADMINISTRATION: PILL
     Route: 048
     Dates: start: 201908, end: 20190818
  3. BELSOMRA [Suspect]
     Active Substance: SUVOREXANT
     Indication: INSOMNIA
     Dosage: 1 PILL ONCE A NIGHT; ROUTE OF ADMINISTRATION: PILL
     Route: 048
     Dates: start: 20190805

REACTIONS (3)
  - Drug ineffective [Recovered/Resolved]
  - Product dose omission [Unknown]
  - Dizziness [Recovered/Resolved]

NARRATIVE: CASE EVENT DATE: 201908
